FAERS Safety Report 17933049 (Version 1)
Quarter: 2020Q2

REPORT INFORMATION
  Report Type: Spontaneous
  Country: US (occurrence: US)
  Receive Date: 20200623
  Receipt Date: 20200623
  Transmission Date: 20200714
  Serious: Yes (Other)
  Sender: FDA-Public Use
  Company Number: US-ELI_LILLY_AND_COMPANY-US202006005765

PATIENT
  Sex: Female
  Weight: 83.45 kg

DRUGS (10)
  1. SPIRONOLACTONE. [Concomitant]
     Active Substance: SPIRONOLACTONE
     Indication: PRODUCT USED FOR UNKNOWN INDICATION
  2. ADCIRCA [Suspect]
     Active Substance: TADALAFIL
     Indication: PULMONARY ARTERIAL HYPERTENSION
     Dosage: UNK, UNKNOWN
     Route: 065
  3. CAROFIT [ASCORBIC ACID;BETACAROTENE;DAUCUS CA [Concomitant]
     Indication: PRODUCT USED FOR UNKNOWN INDICATION
  4. OPSUMIT [Concomitant]
     Active Substance: MACITENTAN
     Indication: PRODUCT USED FOR UNKNOWN INDICATION
  5. REMODULIN [Suspect]
     Active Substance: TREPROSTINIL
     Indication: PULMONARY ARTERIAL HYPERTENSION
     Dosage: 30 UG/KG/MIN, UNKNOWN
     Route: 042
     Dates: start: 20180403
  6. TEGRETOL [Suspect]
     Active Substance: CARBAMAZEPINE
     Indication: NEURALGIA
     Dosage: UNK, UNKNOWN
     Route: 065
  7. PEPCID [ALUMINIUM HYDROXIDE GEL, DRIED;MAGNES [Concomitant]
     Indication: PRODUCT USED FOR UNKNOWN INDICATION
  8. POTASSIUM CHLORIDE. [Concomitant]
     Active Substance: POTASSIUM CHLORIDE
     Indication: PRODUCT USED FOR UNKNOWN INDICATION
  9. ASA [Concomitant]
     Active Substance: ASPIRIN
     Indication: PRODUCT USED FOR UNKNOWN INDICATION
  10. PROTONIX [OMEPRAZOLE] [Concomitant]
     Active Substance: OMEPRAZOLE
     Indication: PRODUCT USED FOR UNKNOWN INDICATION

REACTIONS (8)
  - Gait disturbance [Unknown]
  - Ocular discomfort [Unknown]
  - Swelling [Unknown]
  - Seasonal allergy [Unknown]
  - Eye irritation [Unknown]
  - Dyspnoea [Not Recovered/Not Resolved]
  - Headache [Unknown]
  - Neoplasm malignant [Unknown]
